FAERS Safety Report 25509781 (Version 1)
Quarter: 2025Q3

REPORT INFORMATION
  Report Type: Spontaneous
  Country: EU (occurrence: EU)
  Receive Date: 20250703
  Receipt Date: 20250703
  Transmission Date: 20251020
  Serious: Yes (Other)
  Sender: NOVARTIS
  Company Number: EU-002147023-NVSC2025DE103408

PATIENT
  Age: 30 Year
  Sex: Female

DRUGS (1)
  1. EXJADE [Suspect]
     Active Substance: DEFERASIROX
     Indication: Aplastic anaemia
     Dosage: UNK, QD (6-7 TABLETS)
     Route: 065

REACTIONS (2)
  - Serum ferritin increased [Not Recovered/Not Resolved]
  - Drug ineffective [Not Recovered/Not Resolved]
